FAERS Safety Report 5064716-9 (Version None)
Quarter: 2006Q3

REPORT INFORMATION
  Report Type: 
  Country: None (occurrence: None)
  Receive Date: 20060728
  Receipt Date: 20060725
  Transmission Date: 20061208
  Serious: Yes (Other)
  Sender: FDA-Public Use
  Company Number: GB-GLAXOSMITHKLINE-B0432504A

PATIENT
  Sex: Female
  Weight: 114 kg

DRUGS (6)
  1. LAMOTRIGINE [Suspect]
     Indication: TRIGEMINAL NEURALGIA
     Route: 048
  2. BECLOMETHASONE DIPROPIONATE [Concomitant]
     Dosage: 100MCG FOUR TIMES PER DAY
     Route: 055
  3. CODEIN PHOSPHATE [Concomitant]
     Dosage: 30MG AS REQUIRED
     Route: 048
  4. LAMOTRIGINE [Concomitant]
     Dosage: 100MG TWICE PER DAY
     Route: 048
  5. LANSOPRAZOLE [Concomitant]
     Dosage: 30MG PER DAY
     Route: 048
  6. ALBUTEROL SPIROS [Concomitant]
     Dosage: 100MCG AS REQUIRED
     Route: 055

REACTIONS (2)
  - BLOOD FOLATE DECREASED [None]
  - MACROCYTOSIS [None]
